FAERS Safety Report 21325418 (Version 1)
Quarter: 2022Q3

REPORT INFORMATION
  Report Type: Spontaneous
  Country: US (occurrence: US)
  Receive Date: 20220912
  Receipt Date: 20220912
  Transmission Date: 20221027
  Serious: No
  Sender: FDA-Public Use
  Company Number: US-SA-SAC20220909000443

PATIENT
  Age: 63 Year
  Sex: Male
  Weight: 85.261 kg

DRUGS (30)
  1. DUPIXENT [Suspect]
     Active Substance: DUPILUMAB
     Indication: Dermatitis allergic
     Dosage: 300 MG, QOW
     Route: 058
     Dates: start: 20210615
  2. CORTISONE [Concomitant]
     Active Substance: CORTISONE
  3. SIMVASTATIN [Concomitant]
     Active Substance: SIMVASTATIN
  4. ISOSORBIDE DINITRATE [Concomitant]
     Active Substance: ISOSORBIDE DINITRATE
  5. VITAMIN D3 [Concomitant]
     Active Substance: CHOLECALCIFEROL
  6. DICLOFENAC SODIUM [Concomitant]
     Active Substance: DICLOFENAC SODIUM
  7. ASPIRIN [Concomitant]
     Active Substance: ASPIRIN
  8. AMLODIPINE BESYLATE [Concomitant]
     Active Substance: AMLODIPINE BESYLATE
  9. TIZANIDINE HYDROCHLORIDE [Concomitant]
     Active Substance: TIZANIDINE HYDROCHLORIDE
  10. OMEPRAZOLE [Concomitant]
     Active Substance: OMEPRAZOLE
  11. GABAPENTIN [Concomitant]
     Active Substance: GABAPENTIN
  12. POTASSIUM CHLORIDE [Concomitant]
     Active Substance: POTASSIUM CHLORIDE
  13. PREDNISONE [Concomitant]
     Active Substance: PREDNISONE
  14. ZYRTEC [Concomitant]
     Active Substance: CETIRIZINE HYDROCHLORIDE
  15. BUMETANIDE [Concomitant]
     Active Substance: BUMETANIDE
  16. NITROGLYCERIN [Concomitant]
     Active Substance: NITROGLYCERIN
  17. EZETIMIBE [Concomitant]
     Active Substance: EZETIMIBE
  18. CYANOCOBALAMIN [Concomitant]
     Active Substance: CYANOCOBALAMIN
  19. ALBUTEROL SULFATE [Concomitant]
     Active Substance: ALBUTEROL SULFATE
  20. METOPROLOL SUCCINATE [Concomitant]
     Active Substance: METOPROLOL SUCCINATE
  21. ALLOPURINOL [Concomitant]
     Active Substance: ALLOPURINOL
  22. ELIQUIS [Concomitant]
     Active Substance: APIXABAN
  23. TAMSULOSIN HYDROCHLORIDE [Concomitant]
     Active Substance: TAMSULOSIN HYDROCHLORIDE
  24. FUROSEMIDE [Concomitant]
     Active Substance: FUROSEMIDE
  25. RESTASIS [Concomitant]
     Active Substance: CYCLOSPORINE
  26. CLOBETASOL [Concomitant]
     Active Substance: CLOBETASOL
  27. MUPIROCIN [Concomitant]
     Active Substance: MUPIROCIN
  28. IRON [Concomitant]
     Active Substance: IRON
  29. MODERNA COVID-19 VACCINE [Concomitant]
     Active Substance: ELASOMERAN
  30. CETAPHIL [DIMETICONE;GLYCEROL] [Concomitant]

REACTIONS (2)
  - Drug ineffective [Unknown]
  - Product use in unapproved indication [Unknown]

NARRATIVE: CASE EVENT DATE: 20210615
